FAERS Safety Report 12873519 (Version 1)
Quarter: 2016Q4

REPORT INFORMATION
  Report Type: Spontaneous
  Country: BR (occurrence: BR)
  Receive Date: 20161021
  Receipt Date: 20161021
  Transmission Date: 20170207
  Serious: Yes (Hospitalization)
  Sender: FDA-Public Use
  Company Number: BR-BAYER-2016-197786

PATIENT
  Age: 80 Year
  Sex: Male
  Weight: 108 kg

DRUGS (4)
  1. CARDURA XL [Suspect]
     Active Substance: DOXAZOSIN MESYLATE
     Indication: HYPERTENSION
     Dosage: 4 MG, UNK
     Route: 048
  2. ASPIRINA PREVENT [Suspect]
     Active Substance: ASPIRIN
     Indication: HYPERTENSION
     Dosage: 100 MG, UNK
     Route: 048
     Dates: end: 2016
  3. ENALAPRIL [Suspect]
     Active Substance: ENALAPRIL
     Indication: HYPERTENSION
     Route: 048
  4. FUROSEMIDE. [Suspect]
     Active Substance: FUROSEMIDE
     Indication: HYPERTENSION
     Route: 048

REACTIONS (4)
  - Product use issue [None]
  - Blood pressure decreased [None]
  - Rash [None]
  - Hypoaesthesia [None]

NARRATIVE: CASE EVENT DATE: 2016
